FAERS Safety Report 7238919-9 (Version None)
Quarter: 2011Q1

REPORT INFORMATION
  Report Type: 
  Country: None (occurrence: None)
  Receive Date: 20110121
  Receipt Date: 20110117
  Transmission Date: 20110831
  Serious: Yes (Death, Other)
  Sender: FDA-Public Use
  Company Number: IE-MEDIMMUNE-MEDI-0012174

PATIENT
  Sex: Female
  Weight: 8.16 kg

DRUGS (7)
  1. LACTULOSE [Concomitant]
  2. MORPHINE [Concomitant]
  3. DUPHALAX [Concomitant]
  4. ANTACIDS [Concomitant]
  5. RANITIDINE HYDROCHLORIDE [Concomitant]
  6. SYNAGIS [Suspect]
     Indication: SPINAL MUSCULAR ATROPHY
     Route: 030
     Dates: start: 20101115, end: 20101214
  7. AUGMENTIN '125' [Concomitant]

REACTIONS (2)
  - TERMINAL STATE [None]
  - CONDITION AGGRAVATED [None]
